FAERS Safety Report 22356797 (Version 1)
Quarter: 2023Q2

REPORT INFORMATION
  Report Type: Spontaneous
  Country: IT (occurrence: IT)
  Receive Date: 20230523
  Receipt Date: 20230523
  Transmission Date: 20230722
  Serious: Yes (Other)
  Sender: FDA-Public Use
  Company Number: None

PATIENT
  Age: 77 Year
  Sex: Male

DRUGS (8)
  1. DEXAMETHASONE PHOSPHATE [Interacting]
     Active Substance: DEXAMETHASONE PHOSPHATE
     Indication: Product used for unknown indication
     Route: 042
     Dates: start: 20221010, end: 20230117
  2. ONDANSETRON [Interacting]
     Active Substance: ONDANSETRON
     Indication: Product used for unknown indication
     Route: 042
     Dates: start: 20221010, end: 20230117
  3. LEUCOVORIN CALCIUM [Interacting]
     Active Substance: LEUCOVORIN CALCIUM
     Indication: Product used for unknown indication
     Route: 042
     Dates: start: 20221010, end: 20230117
  4. FLUOROURACIL [Suspect]
     Active Substance: FLUOROURACIL
     Indication: Product used for unknown indication
     Dosage: SOMMINISTRAZIONE PER VIA ENDOVENOSA: ?- 700 MG INIEZIONE IN BOLO?- 4000 MG INFUSIONE CON ELASTOMERO
     Route: 042
     Dates: start: 20221010, end: 20230117
  5. FLUOROURACIL [Suspect]
     Active Substance: FLUOROURACIL
     Dosage: SOMMINISTRAZIONE PER VIA ENDOVENOSA: ?- 700 MG INIEZIONE IN BOLO?- 4000 MG INFUSIONE CON ELASTOMERO
     Route: 042
     Dates: start: 20221010, end: 20230117
  6. OXALIPLATIN [Suspect]
     Active Substance: OXALIPLATIN
     Indication: Rectal adenocarcinoma
     Route: 042
     Dates: start: 20221010, end: 20230117
  7. CHLORPHENIRAMINE [Interacting]
     Active Substance: CHLORPHENIRAMINE
     Indication: Product used for unknown indication
     Route: 042
     Dates: start: 20221010, end: 20230117
  8. MVASI [Suspect]
     Active Substance: BEVACIZUMAB-AWWB
     Indication: Rectal adenocarcinoma
     Route: 042
     Dates: start: 20221010, end: 20230117

REACTIONS (1)
  - Thrombocytopenia [Recovered/Resolved]

NARRATIVE: CASE EVENT DATE: 20230131
